FAERS Safety Report 8078245-1 (Version None)
Quarter: 2012Q1

REPORT INFORMATION
  Report Type: 
  Country: None (occurrence: None)
  Receive Date: 20120123
  Receipt Date: 20120112
  Transmission Date: 20120608
  Serious: Yes (Hospitalization, Other)
  Sender: FDA-Public Use
  Company Number: AUR-APL-2012-00547

PATIENT
  Age: 50 Year
  Sex: Male
  Weight: 103 kg

DRUGS (12)
  1. LISINOPRIL [Suspect]
     Indication: PRODUCT USED FOR UNKNOWN INDICATION
     Dosage: 5 MG (5 MG, 1 IN 1 D), ORAL
     Route: 048
  2. LORTAB [Suspect]
     Indication: PRODUCT USED FOR UNKNOWN INDICATION
     Dosage: (AS NEEDED), ORAL
     Route: 048
  3. VITAMIN B12 [Suspect]
     Indication: PRODUCT USED FOR UNKNOWN INDICATION
  4. VITAMIN D [Suspect]
     Indication: PRODUCT USED FOR UNKNOWN INDICATION
  5. PRILOSEC [Suspect]
     Indication: PRODUCT USED FOR UNKNOWN INDICATION
     Dosage: 40 MG (40 MG, 1 IN 1 D), ORAL
     Route: 048
  6. DOCUSATE SODIUM (DOCUSATE SODIUM) [Suspect]
     Indication: CONSTIPATION
  7. TOPROL-XL [Suspect]
     Indication: PRODUCT USED FOR UNKNOWN INDICATION
     Dosage: 50 MG (50 MG, 1 IN 1 D), ORAL
     Route: 048
  8. ULTRAM [Suspect]
     Indication: PRODUCT USED FOR UNKNOWN INDICATION
     Dosage: (2 IN 1 D), ORAL
     Route: 048
  9. MIRALAX [Suspect]
     Indication: PRODUCT USED FOR UNKNOWN INDICATION
  10. LIPITOR [Suspect]
     Indication: BLOOD CHOLESTEROL ABNORMAL
     Dosage: (40 MG, 1 D), ORAL
     Route: 048
  11. ASPIRIN [Concomitant]
  12. BACLOFEN [Suspect]
     Indication: MUSCLE RELAXANT THERAPY
     Dosage: ORAL
     Route: 048

REACTIONS (9)
  - HEPATIC ENZYME INCREASED [None]
  - VITAMIN B12 DEFICIENCY [None]
  - DIZZINESS [None]
  - CHEST PAIN [None]
  - PAIN IN EXTREMITY [None]
  - LUMBAR RADICULOPATHY [None]
  - INSOMNIA [None]
  - INTERMITTENT CLAUDICATION [None]
  - HYPOAESTHESIA [None]
